FAERS Safety Report 7000232-2 (Version None)
Quarter: 2010Q3

REPORT INFORMATION
  Report Type: 
  Country: None (occurrence: None)
  Receive Date: 20100920
  Receipt Date: 20100412
  Transmission Date: 20110219
  Serious: Yes (Other)
  Sender: FDA-Public Use
  Company Number: US-ASTRAZENECA-2009UW16651

PATIENT
  Age: 21256 Day
  Sex: Male

DRUGS (5)
  1. SEROQUEL [Suspect]
     Indication: INSOMNIA
     Dosage: 25MG TAKE 1-4 TABLETS AT BED TIME
     Route: 048
     Dates: start: 20050926
  2. LOVASTATIN [Concomitant]
     Indication: BLOOD CHOLESTEROL
     Dosage: 40MG TAKE ONE-HALF TABLET BY MOUTH EVERY EVENING WITH EVENING MEAL
     Dates: start: 20041122
  3. HYDROCHLOROTHIAZIDE [Concomitant]
     Indication: HYPERTENSION
     Dates: start: 20040920
  4. LORAZEPAM [Concomitant]
     Route: 048
     Dates: start: 20060228
  5. ZANTAC [Concomitant]
     Indication: GASTROOESOPHAGEAL REFLUX DISEASE

REACTIONS (4)
  - CHOLELITHIASIS [None]
  - KETOACIDOSIS [None]
  - PANCREATITIS [None]
  - TYPE 2 DIABETES MELLITUS [None]
